FAERS Safety Report 6057621-2 (Version None)
Quarter: 2009Q1

REPORT INFORMATION
  Report Type: 
  Country: None (occurrence: None)
  Receive Date: 20090129
  Receipt Date: 20090122
  Transmission Date: 20090719
  Serious: Yes (Hospitalization)
  Sender: FDA-Public Use
  Company Number: BR-ABBOTT-09P-020-0499581-00

PATIENT
  Age: 27 Year
  Sex: Female

DRUGS (5)
  1. SIBUTRAMINE [Suspect]
     Indication: OVERWEIGHT
  2. SIBUTRAMINE [Suspect]
  3. CARBAMAZEPINE [Concomitant]
     Indication: BIPOLAR I DISORDER
  4. CARBAMAZEPINE [Concomitant]
  5. RISPERIDONE [Concomitant]
     Indication: BIPOLAR I DISORDER

REACTIONS (1)
  - HYPOMANIA [None]
